FAERS Safety Report 10903507 (Version 2)
Quarter: 2015Q1

REPORT INFORMATION
  Report Type: Spontaneous
  Country: IT (occurrence: None)
  Receive Date: 20150304
  Receipt Date: 20150309
  Transmission Date: 20150721
  Serious: Yes (Other)
  Sender: FDA-Public Use
  Company Number: KAD201503-000411

PATIENT
  Age: 68 Year
  Sex: Female
  Weight: 70 kg

DRUGS (3)
  1. TELAPREVIR (TELAPREVIR) [Suspect]
     Active Substance: TELAPREVIR
     Indication: CHRONIC HEPATITIS C
     Route: 048
     Dates: start: 20131015, end: 20131115
  2. RIBAVIRIN. [Suspect]
     Active Substance: RIBAVIRIN
     Indication: CHRONIC HEPATITIS C
     Route: 048
     Dates: start: 20131015, end: 20131030
  3. PEGASYS [Suspect]
     Active Substance: PEGINTERFERON ALFA-2A
     Dosage: SOLUTION FOR INJECTION IN PRE-FILLED SYRINGE, 180 MCG WEEKLY, SUBCUTANEOUS
     Route: 058
     Dates: start: 20131025, end: 20131030

REACTIONS (5)
  - Neutropenia [None]
  - Thrombocytopenia [None]
  - Anaemia [None]
  - Leukopenia [None]
  - Drug interaction [None]

NARRATIVE: CASE EVENT DATE: 20131031
